FAERS Safety Report 13172379 (Version 1)
Quarter: 2017Q1

REPORT INFORMATION
  Report Type: Spontaneous
  Country: US (occurrence: US)
  Receive Date: 20170131
  Receipt Date: 20170131
  Transmission Date: 20170428
  Serious: No
  Sender: FDA-Public Use
  Company Number: US-ABBVIE-16K-163-1739093-00

PATIENT
  Sex: Female

DRUGS (1)
  1. HUMIRA [Suspect]
     Active Substance: ADALIMUMAB
     Indication: PRODUCT USED FOR UNKNOWN INDICATION
     Route: 058

REACTIONS (8)
  - Malaise [Unknown]
  - Peripheral swelling [Unknown]
  - Hand deformity [Unknown]
  - Arthritis [Unknown]
  - Back pain [Unknown]
  - Finger deformity [Unknown]
  - Arthropathy [Unknown]
  - Peripheral arthritis [Unknown]

NARRATIVE: CASE EVENT DATE: 201612
